FAERS Safety Report 9323028 (Version 3)
Quarter: 2013Q4

REPORT INFORMATION
  Report Type: Spontaneous
  Country: US (occurrence: US)
  Receive Date: 20130603
  Receipt Date: 20131122
  Transmission Date: 20140711
  Serious: Yes (Hospitalization)
  Sender: FDA-Public Use
  Company Number: US-B.I. PHARMACEUTICALS,INC./RIDGEFIELD-2013-BI-14912BP

PATIENT
  Age: 81 Year
  Sex: Female
  Weight: 52.16 kg

DRUGS (31)
  1. PRADAXA [Suspect]
     Indication: ANTICOAGULANT THERAPY
     Route: 048
     Dates: start: 20120409, end: 20120722
  2. PRADAXA [Suspect]
     Indication: ATRIAL FIBRILLATION
  3. ALDACTONE [Concomitant]
     Indication: DIURETIC THERAPY
     Route: 048
     Dates: start: 2010
  4. AMLODIPINE [Concomitant]
     Dates: start: 2010
  5. BENICAR [Concomitant]
     Dosage: 40 MG
     Route: 048
     Dates: start: 2005
  6. BUMEX [Concomitant]
     Indication: DIURETIC THERAPY
     Dosage: 1 MG
     Route: 048
  7. CALCIUM 600 PLUS VITAMIN D [Concomitant]
     Dates: start: 2005
  8. CLONIDINE [Concomitant]
     Indication: BLOOD PRESSURE
     Dosage: 2 MG
     Route: 048
  9. COREG [Concomitant]
     Dosage: 50 MG
     Route: 048
     Dates: start: 2010
  10. LASIX [Concomitant]
     Dates: start: 2010
  11. GLUCOPHAGE [Concomitant]
     Indication: DIABETES MELLITUS
     Dosage: 1000 MG
     Route: 048
     Dates: start: 2008
  12. ISOSORBIDE DINITRATE [Concomitant]
     Indication: CARDIAC DISORDER
     Dosage: 60 MG
     Route: 048
     Dates: start: 2009
  13. LOSARTAN [Concomitant]
     Dates: start: 2010
  14. MULTIVITAMINS [Concomitant]
     Dates: start: 2000
  15. PRILOSEC [Concomitant]
     Indication: GASTROOESOPHAGEAL REFLUX DISEASE
     Dosage: 40 MG
     Route: 048
     Dates: start: 2010
  16. POTASSIUM [Concomitant]
     Dates: start: 2010
  17. PRINIVIL [Concomitant]
     Dates: start: 2010
  18. ZOCOR [Concomitant]
     Indication: BLOOD CHOLESTEROL ABNORMAL
     Dates: start: 2010
  19. SOTALOL [Concomitant]
     Dates: start: 2010
  20. VITAMIN C [Concomitant]
     Dates: start: 2000
  21. XANAX [Concomitant]
     Indication: ANXIETY
     Dosage: 2 MG
     Route: 048
     Dates: start: 2010
  22. ASPIRIN [Concomitant]
     Indication: CARDIAC DISORDER
     Route: 048
  23. MIRALAX [Concomitant]
     Indication: BOWEL MOVEMENT IRREGULARITY
     Route: 048
  24. BENEFIBER [Concomitant]
     Indication: BOWEL MOVEMENT IRREGULARITY
     Route: 048
  25. PROAIR [Concomitant]
  26. CENTRUM SILVER [Concomitant]
     Indication: HYPOVITAMINOSIS
     Route: 048
  27. LORTAB [Concomitant]
  28. OXYGEN [Concomitant]
  29. ADVAIR [Concomitant]
  30. WELLBUTRIN [Concomitant]
     Indication: DEPRESSION
     Dosage: 150 MG
     Route: 048
  31. VITAMIN B12 [Concomitant]
     Route: 058

REACTIONS (3)
  - Gastrointestinal haemorrhage [Unknown]
  - Anaemia [Unknown]
  - Cardiac failure congestive [Unknown]
